FAERS Safety Report 7271529-6 (Version None)
Quarter: 2011Q1

REPORT INFORMATION
  Report Type: 
  Country: None (occurrence: None)
  Receive Date: 20110128
  Receipt Date: 20110128
  Transmission Date: 20110831
  Serious: No
  Sender: FDA-Public Use
  Company Number: None

PATIENT
  Age: 45 Year
  Sex: Female
  Weight: 63.5036 kg

DRUGS (1)
  1. BETASERON [Suspect]
     Dosage: INJECTION
     Dates: start: 20101201, end: 20110126

REACTIONS (4)
  - PRODUCT QUALITY ISSUE [None]
  - VOMITING [None]
  - DIARRHOEA [None]
  - NAUSEA [None]
